FAERS Safety Report 14684016 (Version 2)
Quarter: 2018Q2

REPORT INFORMATION
  Report Type: Spontaneous
  Country: SK (occurrence: SK)
  Receive Date: 20180327
  Receipt Date: 20180502
  Transmission Date: 20180711
  Serious: Yes (Hospitalization)
  Sender: FDA-Public Use
  Company Number: SK-BAYER-2018-051474

PATIENT
  Age: 56 Year
  Sex: Male

DRUGS (2)
  1. ACETYLSALICYLIC ACID({=100 MG) [Suspect]
     Active Substance: ASPIRIN
     Indication: ANTIPLATELET THERAPY
     Dosage: UNK
     Route: 048
  2. CLOPIDOGREL [Concomitant]
     Active Substance: CLOPIDOGREL BISULFATE
     Indication: ANTIPLATELET THERAPY
     Dosage: UNK

REACTIONS (6)
  - Acute respiratory failure [Recovered/Resolved]
  - Altered state of consciousness [Recovering/Resolving]
  - Asthma [Recovering/Resolving]
  - Syncope [Recovering/Resolving]
  - Dyspnoea [Recovered/Resolved]
  - Cardio-respiratory distress [Recovering/Resolving]
